FAERS Safety Report 6156739-3 (Version None)
Quarter: 2009Q2

REPORT INFORMATION
  Report Type: 
  Country: None (occurrence: None)
  Receive Date: 20090413
  Receipt Date: 20090226
  Transmission Date: 20091009
  Serious: No
  Sender: FDA-Public Use
  Company Number: 2009BM000048

PATIENT
  Age: 13 Year
  Sex: Female
  Weight: 49.8957 kg

DRUGS (1)
  1. KUVAN [Suspect]
     Indication: PHENYLKETONURIA
     Dosage: 1050 MG;QD;PO
     Route: 048
     Dates: start: 20090201

REACTIONS (1)
  - GASTROOESOPHAGEAL REFLUX DISEASE [None]
